FAERS Safety Report 5951491-6 (Version None)
Quarter: 2008Q4

REPORT INFORMATION
  Report Type: 
  Country: None (occurrence: None)
  Receive Date: 20081113
  Receipt Date: 20081106
  Transmission Date: 20090506
  Serious: Yes (Life-Threatening, Hospitalization)
  Sender: FDA-Public Use
  Company Number: FR-BAYER-200830001GPV

PATIENT
  Age: 45 Year
  Sex: Female

DRUGS (4)
  1. NOCTAMIDE [Suspect]
     Indication: SUICIDE ATTEMPT
     Route: 048
     Dates: start: 20080831, end: 20080831
  2. ACETYLSALICYLIC ACID SRT [Suspect]
     Indication: SUICIDE ATTEMPT
     Route: 048
     Dates: start: 20080831, end: 20080831
  3. NORDAZ [Suspect]
     Indication: SUICIDE ATTEMPT
     Route: 048
     Dates: start: 20080831, end: 20080831
  4. ZYPREXA [Concomitant]
     Indication: DRUG USE FOR UNKNOWN INDICATION
     Route: 065

REACTIONS (4)
  - DRUG TOXICITY [None]
  - LUNG DISORDER [None]
  - PUPILS UNEQUAL [None]
  - SUICIDE ATTEMPT [None]
